FAERS Safety Report 5403819-3 (Version None)
Quarter: 2007Q3

REPORT INFORMATION
  Report Type: 
  Country: None (occurrence: None)
  Receive Date: 20070802
  Receipt Date: 20070719
  Transmission Date: 20080115
  Serious: Yes (Hospitalization, Other)
  Sender: FDA-Public Use
  Company Number: CA-AMGEN-US235629

PATIENT
  Sex: Male

DRUGS (10)
  1. ARANESP [Suspect]
     Indication: DIALYSIS
     Route: 042
     Dates: start: 20021001, end: 20070711
  2. FUROSEMIDE [Concomitant]
     Dates: start: 20020301
  3. FOLIC ACID [Concomitant]
     Dates: start: 20020301
  4. LACTULOSE [Concomitant]
     Dates: start: 20020301
  5. DOCUSATE SODIUM [Concomitant]
     Dates: start: 20020301
  6. CALCIUM CARBONATE [Concomitant]
     Dates: start: 20020301
  7. SEVELAMER HCL [Concomitant]
     Dates: start: 20020301
  8. OMEPRAZOLE [Concomitant]
     Dates: start: 20020301
  9. VENOFER [Concomitant]
     Dates: start: 20020301
  10. TPN [Concomitant]
     Dates: start: 20020301

REACTIONS (9)
  - ANAEMIA [None]
  - APLASIA PURE RED CELL [None]
  - ARTHRALGIA [None]
  - CALCIPHYLAXIS [None]
  - EXOMPHALOS [None]
  - HEPATIC CIRRHOSIS [None]
  - HIP ARTHROPLASTY [None]
  - HYPOGAMMAGLOBULINAEMIA [None]
  - PSORIASIS [None]
